FAERS Safety Report 26145064 (Version 1)
Quarter: 2025Q4

REPORT INFORMATION
  Report Type: Spontaneous
  Country: US (occurrence: US)
  Receive Date: 20251211
  Receipt Date: 20251211
  Transmission Date: 20260118
  Serious: No
  Sender: ALCON
  Company Number: US-ALCON LABORATORIES-ALC2025US005162

PATIENT
  Sex: Female

DRUGS (3)
  1. ACOLTREMON [Suspect]
     Active Substance: ACOLTREMON
     Indication: Dry eye
     Dosage: USE 3 VIALS FOR 30 DAYS
     Route: 047
     Dates: start: 20250814, end: 20250913
  2. HYDROXYCHLOROQUINE [Concomitant]
     Active Substance: HYDROXYCHLOROQUINE
     Indication: Product used for unknown indication
     Dosage: UNK
     Route: 065
  3. KEPPRA [Concomitant]
     Active Substance: LEVETIRACETAM
     Indication: Product used for unknown indication
     Dosage: UNK
     Route: 065

REACTIONS (2)
  - Drug ineffective [Unknown]
  - Eye irritation [Unknown]
